FAERS Safety Report 18562577 (Version 1)
Quarter: 2020Q4

REPORT INFORMATION
  Report Type: Report from Study
  Country: None (occurrence: US)
  Receive Date: 20201130
  Receipt Date: 20201130
  Transmission Date: 20210114
  Serious: Yes (Other)
  Sender: FDA-Public Use
  Company Number: US-ABBVIE-17P-163-2207995-00

PATIENT
  Age: 1 Year
  Sex: Male
  Weight: 9.7 kg

DRUGS (1)
  1. SYNAGIS [Suspect]
     Active Substance: PALIVIZUMAB
     Indication: CARDIAC DISORDER
     Dosage: 0.73 MILLILITERS IN LEFT AND RIGHT THIGH MONTHLY
     Route: 030
     Dates: start: 20170127

REACTIONS (2)
  - Product dose omission issue [Unknown]
  - Hypoplastic right heart syndrome [Unknown]

NARRATIVE: CASE EVENT DATE: 20171215
